FAERS Safety Report 4819565-0 (Version None)
Quarter: 2005Q4

REPORT INFORMATION
  Report Type: 
  Country: None (occurrence: None)
  Receive Date: 20051102
  Receipt Date: 20051020
  Transmission Date: 20060501
  Serious: No
  Sender: FDA-Public Use
  Company Number: 20052514

PATIENT
  Sex: Female

DRUGS (1)
  1. LIORESAL [Suspect]
     Indication: MUSCLE SPASTICITY
     Dosage: MCG, DAILY, INTRATHECAL
     Route: 037

REACTIONS (7)
  - CATHETER RELATED COMPLICATION [None]
  - DEVICE FAILURE [None]
  - DRUG WITHDRAWAL SYNDROME [None]
  - MEDICATION ERROR [None]
  - PROCEDURAL COMPLICATION [None]
  - TACHYCARDIA [None]
  - TREMOR [None]
